FAERS Safety Report 5773686-7 (Version None)
Quarter: 2008Q2

REPORT INFORMATION
  Report Type: 
  Country: None (occurrence: None)
  Receive Date: 20080616
  Receipt Date: 20080609
  Transmission Date: 20081010
  Serious: Yes (Death, Hospitalization)
  Sender: FDA-Public Use
  Company Number: US-BRISTOL-MYERS SQUIBB COMPANY-14211585

PATIENT

DRUGS (3)
  1. CETUXIMAB [Suspect]
     Indication: HEAD AND NECK CANCER
     Dosage: LAST ADMINISTERED: 19-MAY-2008
     Dates: start: 20080318, end: 20080318
  2. CISPLATIN [Suspect]
     Indication: HEAD AND NECK CANCER
     Dosage: LAST ADMINISTERED: 19-MAY-2008
     Dates: start: 20080318, end: 20080318
  3. RADIATION THERAPY [Suspect]
     Indication: HEAD AND NECK CANCER
     Dosage: LAST ADMINISTERED: 16-MAY-2008
     Dates: end: 20080318

REACTIONS (8)
  - ASPIRATION [None]
  - ATRIAL FIBRILLATION [None]
  - BACTERAEMIA [None]
  - CELLULITIS [None]
  - DEHYDRATION [None]
  - HYPOXIA [None]
  - MULTI-ORGAN FAILURE [None]
  - RENAL FAILURE ACUTE [None]
